FAERS Safety Report 6852293-9 (Version None)
Quarter: 2010Q3

REPORT INFORMATION
  Report Type: 
  Country: None (occurrence: None)
  Receive Date: 20100717
  Receipt Date: 20071109
  Transmission Date: 20110219
  Serious: No
  Sender: FDA-Public Use
  Company Number: US-PFIZER INC-2007097312

PATIENT
  Sex: Female
  Weight: 63.6 kg

DRUGS (4)
  1. CHANTIX [Suspect]
     Indication: SMOKING CESSATION THERAPY
     Route: 048
     Dates: start: 20070501
  2. NEXIUM [Concomitant]
     Indication: GASTRIC DISORDER
  3. EFFEXOR [Concomitant]
  4. DRUG, UNSPECIFIED [Concomitant]
     Indication: THYROID DISORDER

REACTIONS (1)
  - HEADACHE [None]
